FAERS Safety Report 7712933-9 (Version None)
Quarter: 2011Q3

REPORT INFORMATION
  Report Type: 
  Country: None (occurrence: None)
  Receive Date: 20110826
  Receipt Date: 20110822
  Transmission Date: 20111222
  Serious: Yes (Life-Threatening)
  Sender: FDA-Public Use
  Company Number: PHEH2011US02146

PATIENT
  Sex: Male

DRUGS (2)
  1. EXFORGE [Suspect]
     Dosage: 160 MG VALSARTAN AND 5 MG AMLODIPINE, ONCE DAILY
     Route: 048
  2. MAXZIDE [Concomitant]

REACTIONS (6)
  - STRESS [None]
  - BLOOD PRESSURE INCREASED [None]
  - JOINT SWELLING [None]
  - DRUG INEFFECTIVE [None]
  - FEELING ABNORMAL [None]
  - PANIC DISORDER [None]
